FAERS Safety Report 13843553 (Version 1)
Quarter: 2017Q3

REPORT INFORMATION
  Report Type: Spontaneous
  Country: FR (occurrence: FR)
  Receive Date: 20170808
  Receipt Date: 20170808
  Transmission Date: 20171127
  Serious: Yes (Other)
  Sender: FDA-Public Use
  Company Number: FR-SEPTODONT-201704170

PATIENT
  Age: 29 Year
  Sex: Female

DRUGS (1)
  1. SEPTANEST 40 MG/ML ADR?NALIN?E AU 1/200.000 [Suspect]
     Active Substance: ARTICAINE HYDROCHLORIDE\EPINEPHRINE BITARTRATE
     Indication: DENTAL LOCAL ANAESTHESIA
     Dosage: THE CARTRIDGE HAS NOT BEEN FULLY INJECTED
     Route: 004
     Dates: start: 20170724, end: 20170724

REACTIONS (4)
  - Malaise [Unknown]
  - Loss of consciousness [Recovered/Resolved]
  - Chest pain [Unknown]
  - Seizure [Recovered/Resolved]

NARRATIVE: CASE EVENT DATE: 20170724
